FAERS Safety Report 7320386-8 (Version None)
Quarter: 2011Q1

REPORT INFORMATION
  Report Type: 
  Country: None (occurrence: None)
  Receive Date: 20110228
  Receipt Date: 20110216
  Transmission Date: 20110831
  Serious: Yes (Other)
  Sender: FDA-Public Use
  Company Number: A0890557A

PATIENT
  Age: 24 Year
  Sex: Female
  Weight: 52.3 kg

DRUGS (3)
  1. PRENATAL VITAMINS [Concomitant]
  2. ADVAIR DISKUS 100/50 [Suspect]
     Indication: ASTHMA
     Dosage: 1PUFF TWICE PER DAY
     Route: 055
     Dates: start: 20000101, end: 20040701
  3. PROVENTIL [Concomitant]

REACTIONS (6)
  - POLYHYDRAMNIOS [None]
  - ULTRASOUND SCAN [None]
  - SPIROMETRY [None]
  - DRUG EXPOSURE DURING PREGNANCY [None]
  - PREMATURE LABOUR [None]
  - LIVE BIRTH [None]
